FAERS Safety Report 5490997-3 (Version None)
Quarter: 2007Q4

REPORT INFORMATION
  Report Type: 
  Country: None (occurrence: None)
  Receive Date: 20071019
  Receipt Date: 20071010
  Transmission Date: 20080405
  Serious: Yes (Other)
  Sender: FDA-Public Use
  Company Number: DE-PFIZER INC-2007055268

PATIENT
  Sex: Female

DRUGS (1)
  1. LYRICA [Suspect]
     Dosage: DAILY DOSE:75MG
     Route: 048
     Dates: start: 20070323, end: 20070717

REACTIONS (2)
  - ORAL DISCOMFORT [None]
  - TUMOUR MARKER INCREASED [None]
